FAERS Safety Report 21017661 (Version 1)
Quarter: 2022Q3

REPORT INFORMATION
  Report Type: Spontaneous
  Country: US (occurrence: US)
  Receive Date: 20220628
  Receipt Date: 20220628
  Transmission Date: 20221027
  Serious: No
  Sender: FDA-Public Use
  Company Number: US-NOVARTISTESTPH-NVSC2022US146289

PATIENT
  Sex: Female

DRUGS (2)
  1. SIMBRINZA [Suspect]
     Active Substance: BRIMONIDINE TARTRATE\BRINZOLAMIDE
     Indication: Intraocular pressure increased
     Dosage: 0.5 %, BID
     Route: 065
  2. BRIMONIDINE [Suspect]
     Active Substance: BRIMONIDINE TARTRATE
     Indication: Intraocular pressure increased
     Dosage: UNK
     Route: 065

REACTIONS (2)
  - Scleral disorder [Unknown]
  - Drug ineffective [Unknown]
